FAERS Safety Report 25877308 (Version 1)
Quarter: 2025Q4

REPORT INFORMATION
  Report Type: Spontaneous
  Country: CN (occurrence: CN)
  Receive Date: 20251003
  Receipt Date: 20251003
  Transmission Date: 20260117
  Serious: Yes (Other)
  Sender: MACLEODS
  Company Number: CN-MLMSERVICE-20250915-PI644700-00202-1

PATIENT

DRUGS (8)
  1. LINEZOLID [Suspect]
     Active Substance: LINEZOLID
     Indication: Antibiotic therapy
     Route: 042
     Dates: start: 202306, end: 20230701
  2. LINEZOLID [Suspect]
     Active Substance: LINEZOLID
     Indication: Antibiotic therapy
  3. LINEZOLID [Suspect]
     Active Substance: LINEZOLID
     Indication: Postoperative wound infection
  4. LINEZOLID [Suspect]
     Active Substance: LINEZOLID
     Indication: Postoperative wound infection
  5. AMIKACIN [Concomitant]
     Active Substance: AMIKACIN
     Route: 065
     Dates: start: 20230629, end: 20230701
  6. AMIKACIN [Concomitant]
     Active Substance: AMIKACIN
  7. IMIPENEM [Concomitant]
     Active Substance: IMIPENEM
     Route: 065
     Dates: start: 20230701
  8. IMIPENEM [Concomitant]
     Active Substance: IMIPENEM

REACTIONS (5)
  - Antibiotic level above therapeutic [Recovered/Resolved]
  - Haematotoxicity [Recovered/Resolved]
  - Anaemia [Recovered/Resolved]
  - Thrombocytopenia [Recovered/Resolved]
  - Myelosuppression [Recovered/Resolved]

NARRATIVE: CASE EVENT DATE: 20230701
